FAERS Safety Report 9917543 (Version 1)
Quarter: 2014Q1

REPORT INFORMATION
  Report Type: Spontaneous
  Country: DE (occurrence: DE)
  Receive Date: 20140221
  Receipt Date: 20140221
  Transmission Date: 20141002
  Serious: Yes (Other)
  Sender: FDA-Public Use
  Company Number: DE-TEVA-463303GER

PATIENT
  Age: 46 Year
  Sex: 0

DRUGS (3)
  1. OXALIPLATIN [Suspect]
     Indication: COLON CANCER
     Route: 065
  2. FLUOROURACIL [Suspect]
     Indication: COLON CANCER
     Route: 065
  3. FOLINIC ACID [Suspect]
     Indication: COLON CANCER
     Route: 065

REACTIONS (2)
  - Nodular regenerative hyperplasia [Unknown]
  - Venoocclusive liver disease [Unknown]
